FAERS Safety Report 10625797 (Version 1)
Quarter: 2014Q4

REPORT INFORMATION
  Report Type: Spontaneous
  Country: US (occurrence: US)
  Receive Date: 20141204
  Receipt Date: 20141204
  Transmission Date: 20150529
  Serious: No
  Sender: FDA-Public Use
  Company Number: US-009507513-1411USA008744

PATIENT
  Sex: Male

DRUGS (1)
  1. DULERA [Suspect]
     Active Substance: FORMOTEROL FUMARATE DIHYDRATE\MOMETASONE FUROATE
     Dosage: TOTAL DAILY DOSE: 100/5 MCG/4 PUFFS DAILY
     Route: 055

REACTIONS (3)
  - Wrong technique in drug usage process [Unknown]
  - Product container issue [Unknown]
  - No adverse event [Unknown]
